FAERS Safety Report 7828619-6 (Version None)
Quarter: 2011Q4

REPORT INFORMATION
  Report Type: 
  Country: None (occurrence: None)
  Receive Date: 20111020
  Receipt Date: 20111019
  Transmission Date: 20120403
  Serious: Yes (Other)
  Sender: FDA-Public Use
  Company Number: US-ABBOTT-11P-163-0700801-00

PATIENT
  Sex: Female

DRUGS (6)
  1. HUMIRA [Suspect]
     Indication: PSORIATIC ARTHROPATHY
     Dates: start: 20070101
  2. FOLIC ACID [Concomitant]
     Indication: PRODUCT USED FOR UNKNOWN INDICATION
     Dosage: EXCEPT WHEN TAKING METHOTREXATE
     Route: 048
  3. SIMVASTATIN [Concomitant]
     Indication: BLOOD CHOLESTEROL INCREASED
     Dosage: EVERY DAY
  4. METHOTREXATE [Concomitant]
     Indication: PRODUCT USED FOR UNKNOWN INDICATION
  5. VITAMIN D [Concomitant]
     Indication: PRODUCT USED FOR UNKNOWN INDICATION
     Route: 048
  6. SIMVASTATIN [Concomitant]
     Indication: PROPHYLAXIS

REACTIONS (13)
  - SINUSITIS [None]
  - TONSILLAR HYPERTROPHY [None]
  - TONSILLITIS [None]
  - DIZZINESS [None]
  - PAIN [None]
  - GAIT DISTURBANCE [None]
  - DEAFNESS UNILATERAL [None]
  - PULMONARY FIBROSIS [None]
  - BLOOD URINE PRESENT [None]
  - OSTEOPENIA [None]
  - ORTHOPNOEA [None]
  - FUNGAL INFECTION [None]
  - EAR DISORDER [None]
